FAERS Safety Report 18309765 (Version 1)
Quarter: 2020Q3

REPORT INFORMATION
  Report Type: Spontaneous
  Country: US (occurrence: US)
  Receive Date: 20200924
  Receipt Date: 20200924
  Transmission Date: 20201103
  Serious: Yes (Other)
  Sender: FDA-Public Use
  Company Number: US-PFIZER INC-2020368762

PATIENT
  Age: 52 Year
  Sex: Male

DRUGS (4)
  1. PLAQUENIL [Concomitant]
     Active Substance: HYDROXYCHLOROQUINE SULFATE
     Dosage: UNK
  2. LYRICA [Concomitant]
     Active Substance: PREGABALIN
     Dosage: UNK
  3. METHOTREXATE. [Concomitant]
     Active Substance: METHOTREXATE
     Dosage: UNK
  4. XELJANZ XR [Suspect]
     Active Substance: TOFACITINIB CITRATE
     Indication: RHEUMATOID ARTHRITIS
     Dosage: 11 MG, 1X/DAY
     Route: 048
     Dates: start: 2019

REACTIONS (9)
  - Obsessive-compulsive disorder [Unknown]
  - Sitting disability [Unknown]
  - Radiation injury [Unknown]
  - Seizure [Unknown]
  - Attention deficit hyperactivity disorder [Unknown]
  - Arthropathy [Unknown]
  - Back disorder [Unknown]
  - Headache [Unknown]
  - Musculoskeletal discomfort [Unknown]
